FAERS Safety Report 6808376-2 (Version None)
Quarter: 2010Q2

REPORT INFORMATION
  Report Type: 
  Country: None (occurrence: None)
  Receive Date: 20100629
  Receipt Date: 20090811
  Transmission Date: 20101027
  Serious: No
  Sender: FDA-Public Use
  Company Number: US-PFIZER INC-2009191759

PATIENT
  Sex: Female
  Weight: 65.8 kg

DRUGS (5)
  1. TIKOSYN [Suspect]
     Indication: ARRHYTHMIA
     Route: 048
     Dates: start: 20030101
  2. CIPROFLOXACIN [Suspect]
  3. ASPIRINE [Concomitant]
  4. ZOCOR [Concomitant]
  5. CLOBETASOL [Concomitant]

REACTIONS (3)
  - ARRHYTHMIA [None]
  - DRUG HYPERSENSITIVITY [None]
  - SINUSITIS [None]
